FAERS Safety Report 23702533 (Version 1)
Quarter: 2024Q2

REPORT INFORMATION
  Report Type: Spontaneous
  Country: JP (occurrence: JP)
  Receive Date: 20240403
  Receipt Date: 20240403
  Transmission Date: 20240716
  Serious: Yes (Life-Threatening, Hospitalization)
  Sender: FDA-Public Use
  Company Number: JP-MYLANLABS-2024M1020776

PATIENT
  Age: 31 Year
  Sex: Female

DRUGS (3)
  1. EFFEXOR XR [Suspect]
     Active Substance: VENLAFAXINE HYDROCHLORIDE
     Indication: Product used for unknown indication
     Dosage: 197 DOSAGE FORM
     Route: 048
     Dates: end: 20240304
  2. FLUNITRAZEPAM [Concomitant]
     Active Substance: FLUNITRAZEPAM
     Indication: Product used for unknown indication
     Dosage: 6 MILLIGRAM
     Route: 048
     Dates: end: 20240304
  3. ESTAZOLAM [Concomitant]
     Active Substance: ESTAZOLAM
     Indication: Product used for unknown indication
     Dosage: 6 MILLIGRAM
     Route: 048
     Dates: end: 20240304

REACTIONS (2)
  - Cardio-respiratory arrest [Recovered/Resolved]
  - Intentional overdose [Unknown]

NARRATIVE: CASE EVENT DATE: 20240304
